FAERS Safety Report 12116577 (Version 1)
Quarter: 2016Q1

REPORT INFORMATION
  Report Type: Spontaneous
  Country: DE (occurrence: DE)
  Receive Date: 20160225
  Receipt Date: 20160225
  Transmission Date: 20160526
  Serious: Yes (Other)
  Sender: FDA-Public Use
  Company Number: DE-PFIZER INC-2016047562

PATIENT
  Age: 4 Decade
  Sex: Female

DRUGS (1)
  1. TREVILOR RETARD [Suspect]
     Active Substance: VENLAFAXINE HYDROCHLORIDE
     Indication: DEPRESSIVE SYMPTOM
     Dosage: 300 MG, UNK

REACTIONS (3)
  - Condition aggravated [Unknown]
  - Autoimmune thyroiditis [Unknown]
  - Hyperthyroidism [Unknown]
